FAERS Safety Report 6376298-X (Version None)
Quarter: 2009Q3

REPORT INFORMATION
  Report Type: 
  Country: None (occurrence: None)
  Receive Date: 20090923
  Receipt Date: 20090923
  Transmission Date: 20100115
  Serious: No
  Sender: FDA-Public Use
  Company Number: None

PATIENT

DRUGS (1)
  1. IV PROMETRAZINE [Suspect]
     Dosage: IV
     Route: 042

REACTIONS (1)
  - MEDICATION ERROR [None]
